FAERS Safety Report 8266394-4 (Version None)
Quarter: 2012Q2

REPORT INFORMATION
  Report Type: 
  Country: None (occurrence: None)
  Receive Date: 20120406
  Receipt Date: 20120403
  Transmission Date: 20120825
  Serious: Yes (Hospitalization, Other)
  Sender: FDA-Public Use
  Company Number: BR-ABBOTT-12P-020-0898804-00

PATIENT
  Sex: Male
  Weight: 68 kg

DRUGS (3)
  1. HUMIRA [Suspect]
     Route: 058
  2. HUMIRA [Suspect]
     Dosage: INDUCTION DOSE
     Route: 058
  3. HUMIRA [Suspect]
     Indication: CROHN'S DISEASE
     Dosage: INDUCTION DOSE
     Route: 058
     Dates: start: 20090825

REACTIONS (4)
  - OESOPHAGEAL FISTULA [None]
  - CROHN'S DISEASE [None]
  - SMALL INTESTINAL OBSTRUCTION [None]
  - DRUG INEFFECTIVE [None]
